FAERS Safety Report 7689466-1 (Version None)
Quarter: 2011Q3

REPORT INFORMATION
  Report Type: 
  Country: None (occurrence: None)
  Receive Date: 20110817
  Receipt Date: 20110812
  Transmission Date: 20111222
  Serious: Yes (Life-Threatening, Hospitalization)
  Sender: FDA-Public Use
  Company Number: RO-BRACCO-000007

PATIENT
  Sex: Female

DRUGS (1)
  1. IOPAMIDOL [Suspect]
     Indication: COMPUTERISED TOMOGRAM

REACTIONS (5)
  - DYSPNOEA [None]
  - WHEEZING [None]
  - CHILLS [None]
  - PARAESTHESIA [None]
  - POLYURIA [None]
